FAERS Safety Report 13613349 (Version 1)
Quarter: 2017Q2

REPORT INFORMATION
  Report Type: Spontaneous
  Country: US (occurrence: US)
  Receive Date: 20170605
  Receipt Date: 20170605
  Transmission Date: 20170830
  Serious: No
  Sender: FDA-Public Use
  Company Number: US-TEVA-774389USA

PATIENT
  Age: 15 Year
  Sex: Male

DRUGS (2)
  1. QVAR [Suspect]
     Active Substance: BECLOMETHASONE DIPROPIONATE
     Indication: HYPERSENSITIVITY
     Dates: start: 20170525, end: 20170525
  2. QVAR [Suspect]
     Active Substance: BECLOMETHASONE DIPROPIONATE
     Indication: ASTHMA
     Dosage: 4 DOSAGE FORMS DAILY; 2 PUFFS BY MOUTH TWICE DAILY
     Dates: start: 20170524, end: 20170525

REACTIONS (3)
  - Oropharyngeal pain [Unknown]
  - Discomfort [Unknown]
  - Oral pain [Unknown]

NARRATIVE: CASE EVENT DATE: 20170525
